FAERS Safety Report 8317872-0 (Version None)
Quarter: 2012Q2

REPORT INFORMATION
  Report Type: 
  Country: None (occurrence: None)
  Receive Date: 20120427
  Receipt Date: 20120417
  Transmission Date: 20120825
  Serious: Yes (Hospitalization, Other)
  Sender: FDA-Public Use
  Company Number: US-ELI_LILLY_AND_COMPANY-US201202001810

PATIENT
  Sex: Female

DRUGS (4)
  1. FORTEO [Suspect]
     Indication: OSTEOPOROSIS
     Dosage: 20 UG, QD
     Dates: start: 20120130
  2. FORTEO [Suspect]
     Dosage: 20 UG, QD
  3. ENBREL [Concomitant]
     Indication: ARTHRITIS
     Dosage: UNK
     Dates: start: 19990101
  4. FORTEO [Suspect]
     Dosage: 20 UG, QD

REACTIONS (6)
  - HIP FRACTURE [None]
  - NAUSEA [None]
  - COUGH [None]
  - CONSTIPATION [None]
  - MUSCLE SPASMS [None]
  - MUSCULAR WEAKNESS [None]
